FAERS Safety Report 8643737 (Version 2)
Quarter: 2013Q3

REPORT INFORMATION
  Report Type: Spontaneous
  Country: DK (occurrence: DK)
  Receive Date: 20120629
  Receipt Date: 20130820
  Transmission Date: 20140515
  Serious: Yes (Hospitalization, Disabling)
  Sender: FDA-Public Use
  Company Number: DK-ROCHE-1082157

PATIENT
  Age: 60 Year
  Sex: Male

DRUGS (3)
  1. MABTHERA [Suspect]
     Indication: RHEUMATOID ARTHRITIS
     Dosage: START DOSE: 1000 MG TWICE IN TWO WEEKS
     Route: 065
     Dates: start: 20080904
  2. PREDNISOLONE [Concomitant]
     Indication: RHEUMATOID ARTHRITIS
     Route: 065
     Dates: start: 20080606
  3. METHOTREXATE [Concomitant]
     Indication: RHEUMATOID ARTHRITIS
     Dosage: ORAL FROM 20-JAN-2005 UNTIL 12-OCT-2005.
     Route: 048
     Dates: start: 20050120

REACTIONS (1)
  - Cerebral haemorrhage [Recovered/Resolved with Sequelae]
